FAERS Safety Report 10823701 (Version 1)
Quarter: 2015Q1

REPORT INFORMATION
  Report Type: Spontaneous
  Country: CN (occurrence: CN)
  Receive Date: 20150218
  Receipt Date: 20150218
  Transmission Date: 20150721
  Serious: Yes (Death, Hospitalization)
  Sender: FDA-Public Use
  Company Number: CN-EXELIXIS-CABO-15005202

PATIENT
  Age: 64 Year
  Sex: Male

DRUGS (4)
  1. COMETRIQ [Suspect]
     Active Substance: CABOZANTINIB S-MALATE
     Dosage: 50 MG, BID
     Route: 048
     Dates: start: 20140531, end: 20140601
  2. COMETRIQ [Suspect]
     Active Substance: CABOZANTINIB S-MALATE
     Indication: HEPATOCELLULAR CARCINOMA
     Dosage: 50 MG, QD
     Route: 048
     Dates: start: 20140525, end: 20140530
  3. AXITINIB [Concomitant]
     Active Substance: AXITINIB
     Indication: HEPATOCELLULAR CARCINOMA
     Dosage: 7 MG, BID
     Route: 048
     Dates: start: 20140317, end: 20140530
  4. AXITINIB [Concomitant]
     Active Substance: AXITINIB
     Dosage: 7 MG, BID
     Route: 048
     Dates: start: 201406

REACTIONS (10)
  - Fatigue [Unknown]
  - Asthenia [Unknown]
  - Hypopnoea [Unknown]
  - Somnolence [Unknown]
  - Vomiting [Unknown]
  - Liver injury [Fatal]
  - Respiratory failure [Unknown]
  - Nausea [Unknown]
  - Off label use [Unknown]
  - Acute kidney injury [Recovering/Resolving]

NARRATIVE: CASE EVENT DATE: 20140530
